FAERS Safety Report 9786480 (Version 1)
Quarter: 2013Q4

REPORT INFORMATION
  Report Type: Spontaneous
  Country: FR (occurrence: None)
  Receive Date: 20131224
  Receipt Date: 20131224
  Transmission Date: 20140711
  Serious: Yes (Hospitalization)
  Sender: FDA-Public Use
  Company Number: DSM-2013-01219

PATIENT
  Age: 60 Year
  Sex: Female

DRUGS (5)
  1. ALTEIS DUO [Suspect]
     Indication: HYPERTENSION
     Route: 048
     Dates: end: 20131003
  2. BISOPROLOL HEMIFUMARATE [Suspect]
     Indication: HYPERTENSION
     Route: 048
  3. DOLIPRANE (PARACETAMOL) (PARACETAMOL) [Concomitant]
  4. PIASCLEDINE (PIAS) [Concomitant]
  5. TRANQUITAL (VALERIANA OFFICINALIS DRY EXTRACT, CRATAEGUS SPP. DRY EXTRACT) (VALERIANA OFFICINALIS DRY EXTRACT, CRATAEGUS SPP. DRY EXTRACT) [Concomitant]

REACTIONS (6)
  - Presyncope [None]
  - Atrial fibrillation [None]
  - Hypokalaemia [None]
  - Loss of consciousness [None]
  - Fall [None]
  - Head injury [None]
